FAERS Safety Report 13122294 (Version 2)
Quarter: 2017Q1

REPORT INFORMATION
  Report Type: Report from Study
  Country: US (occurrence: US)
  Receive Date: 20170117
  Receipt Date: 20170328
  Transmission Date: 20170428
  Serious: Yes (Hospitalization, Other)
  Sender: FDA-Public Use
  Company Number: US-GILEAD-2017-0252733

PATIENT
  Age: 70 Year
  Sex: Male

DRUGS (1)
  1. AMBRISENTAN [Suspect]
     Active Substance: AMBRISENTAN
     Indication: PULMONARY HYPERTENSION
     Dosage: 5 MG, QD
     Route: 065
     Dates: start: 20160217

REACTIONS (3)
  - Cardiac disorder [Recovered/Resolved]
  - Haemoglobin decreased [Recovered/Resolved]
  - Tricuspid valve replacement [Unknown]

NARRATIVE: CASE EVENT DATE: 20170108
